FAERS Safety Report 10052452 (Version 1)
Quarter: 2014Q2

REPORT INFORMATION
  Report Type: Spontaneous
  Country: US (occurrence: None)
  Receive Date: 20140401
  Receipt Date: 20140401
  Transmission Date: 20141212
  Serious: Yes (Other)
  Sender: FDA-Public Use
  Company Number: None

PATIENT
  Age: 35 Year
  Sex: Female
  Weight: 90.72 kg

DRUGS (1)
  1. ADDERALL [Suspect]
     Indication: ATTENTION DEFICIT/HYPERACTIVITY DISORDER
     Dosage: 1 PILL TAKEN BY MOUTH
     Route: 048
     Dates: start: 20140322, end: 20140328

REACTIONS (6)
  - Swollen tongue [None]
  - Stomatitis [None]
  - Insomnia [None]
  - Pyrexia [None]
  - Lymphoedema [None]
  - Inflammation [None]
